FAERS Safety Report 6676778-3 (Version None)
Quarter: 2010Q2

REPORT INFORMATION
  Report Type: 
  Country: None (occurrence: None)
  Receive Date: 20100409
  Receipt Date: 20100409
  Transmission Date: 20101027
  Serious: Yes (Disabling)
  Sender: FDA-Public Use
  Company Number: None

PATIENT
  Sex: Male
  Weight: 50.9 kg

DRUGS (3)
  1. CONCERTA [Suspect]
     Indication: ATTENTION DEFICIT/HYPERACTIVITY DISORDER
     Dosage: 36 MG ONCE DAILY ORAL
     Route: 048
  2. MIRTAZAPINE [Suspect]
     Indication: ANXIETY
     Dosage: 22.5 ONCE DAILY ORAL
     Route: 048
  3. MIRTAZAPINE [Suspect]
     Indication: INSOMNIA
     Dosage: 22.5 ONCE DAILY ORAL
     Route: 048

REACTIONS (1)
  - TOOTH DEVELOPMENT DISORDER [None]
